FAERS Safety Report 13597804 (Version 7)
Quarter: 2018Q1

REPORT INFORMATION
  Report Type: Report from Study
  Country: US (occurrence: US)
  Receive Date: 20170531
  Receipt Date: 20180214
  Transmission Date: 20180508
  Serious: No
  Sender: FDA-Public Use
  Company Number: PHEH2017US016249

PATIENT
  Sex: Female
  Weight: 110.2 kg

DRUGS (2)
  1. COSENTYX [Suspect]
     Active Substance: SECUKINUMAB
     Indication: PSORIASIS
     Dosage: 300 MG, QMO
     Route: 058
     Dates: start: 20170518
  2. COSENTYX [Suspect]
     Active Substance: SECUKINUMAB
     Dosage: 300 MG, QMO
     Route: 058
     Dates: start: 20170809

REACTIONS (10)
  - Psoriasis [Unknown]
  - Pruritus [Unknown]
  - Pyrexia [Unknown]
  - Malaise [Unknown]
  - Skin discolouration [Unknown]
  - Oropharyngeal pain [Unknown]
  - Stress [Unknown]
  - Skin exfoliation [Unknown]
  - Intervertebral disc degeneration [Unknown]
  - Inappropriate schedule of drug administration [Unknown]
